FAERS Safety Report 21582230 (Version 1)
Quarter: 2022Q4

REPORT INFORMATION
  Report Type: Spontaneous
  Country: TN (occurrence: None)
  Receive Date: 20221111
  Receipt Date: 20221111
  Transmission Date: 20230113
  Serious: Yes (Hospitalization, Other)
  Sender: FDA-Public Use
  Company Number: TN-Unichem Pharmaceuticals (USA) Inc-UCM202211-001162

PATIENT
  Age: 27 Year
  Sex: Male

DRUGS (3)
  1. CARBAMAZEPINE [Suspect]
     Active Substance: CARBAMAZEPINE
     Indication: Partial seizures
  2. ACETAZOLAMIDE [Suspect]
     Active Substance: ACETAZOLAMIDE
     Indication: Injury
     Dosage: UNKNOWN
  3. CEFOTAXIME [Concomitant]
     Active Substance: CEFOTAXIME SODIUM
     Indication: Prophylaxis
     Dosage: (2G 9 6/DAY)

REACTIONS (2)
  - Drug-induced liver injury [Recovered/Resolved]
  - Labelled drug-drug interaction issue [Unknown]
